FAERS Safety Report 24544087 (Version 1)
Quarter: 2024Q4

REPORT INFORMATION
  Report Type: Spontaneous
  Country: US (occurrence: None)
  Receive Date: 20241023
  Receipt Date: 20241023
  Transmission Date: 20250115
  Serious: Yes (Hospitalization)
  Sender: Public
  Company Number: None

PATIENT
  Age: 62 Year
  Sex: Female

DRUGS (9)
  1. COTELLIC [Suspect]
     Active Substance: COBIMETINIB
     Indication: Malignant melanoma
     Dosage: OTHER FREQUENCY : DAILY FOR 21 DAYS;?
     Route: 048
     Dates: start: 20241011
  2. ALPRAZOLAM [Concomitant]
     Active Substance: ALPRAZOLAM
  3. AMLODIPINE [Concomitant]
     Active Substance: AMLODIPINE BESYLATE
  4. BRAFTOVI [Concomitant]
     Active Substance: ENCORAFENIB
  5. DEXAMETHASONE [Concomitant]
     Active Substance: DEXAMETHASONE
  6. ATROPINE SULFATE\DIPHENOXYLATE [Concomitant]
     Active Substance: ATROPINE SULFATE\DIPHENOXYLATE
  7. GABAPENTIN [Concomitant]
     Active Substance: GABAPENTIN
  8. A-HYDROCORT [Concomitant]
     Active Substance: HYDROCORTISONE SODIUM SUCCINATE
  9. LATANOPROST [Concomitant]
     Active Substance: LATANOPROST

REACTIONS (5)
  - Hypotension [None]
  - Rash [None]
  - Pyrexia [None]
  - Nausea [None]
  - Therapy interrupted [None]

NARRATIVE: CASE EVENT DATE: 20241020
